FAERS Safety Report 4651629-7 (Version None)
Quarter: 2005Q2

REPORT INFORMATION
  Report Type: 
  Country: None (occurrence: None)
  Receive Date: 20050502
  Receipt Date: 20050422
  Transmission Date: 20051028
  Serious: Yes (Hospitalization)
  Sender: FDA-Public Use
  Company Number: S05-USA-02156-01

PATIENT
  Age: 66 Year
  Sex: Male

DRUGS (3)
  1. LEXAPRO [Suspect]
     Indication: DEPRESSION
     Dosage: 10 MG QD PO
     Route: 048
     Dates: start: 20041209, end: 20050316
  2. LEXAPRO [Suspect]
     Indication: DEPRESSION
     Dosage: 15 MG QD PO
     Route: 048
     Dates: start: 20050317, end: 20050323
  3. FLOMAX [Concomitant]

REACTIONS (10)
  - BRONCHITIS ACUTE [None]
  - CONVULSION [None]
  - EXCORIATION [None]
  - FALL [None]
  - HYPERTENSION [None]
  - HYPONATRAEMIA [None]
  - LOSS OF CONSCIOUSNESS [None]
  - PNEUMOTHORAX [None]
  - PYREXIA [None]
  - RIB FRACTURE [None]
